FAERS Safety Report 4837214-2 (Version None)
Quarter: 2005Q4

REPORT INFORMATION
  Report Type: 
  Country: None (occurrence: None)
  Receive Date: 20051122
  Receipt Date: 20051114
  Transmission Date: 20060501
  Serious: Yes (Other)
  Sender: FDA-Public Use
  Company Number: HQWYE558815NOV05

PATIENT
  Age: 72 Year
  Sex: Female

DRUGS (6)
  1. TYGACIL [Suspect]
     Indication: MULTIPLE-DRUG RESISTANCE
     Dosage: 100 MG LOADING DOSE, INTRAVENOUS
     Route: 042
     Dates: start: 20051030, end: 20051030
  2. PROTONIX [Concomitant]
  3. LASIX [Concomitant]
  4. MORPHINE [Concomitant]
  5. ATIVAN [Concomitant]
  6. NOVOLOG [Concomitant]

REACTIONS (1)
  - VENTRICULAR TACHYCARDIA [None]
